FAERS Safety Report 6694286-0 (Version None)
Quarter: 2010Q2

REPORT INFORMATION
  Report Type: 
  Country: None (occurrence: None)
  Receive Date: 20100423
  Receipt Date: 20100416
  Transmission Date: 20101027
  Serious: Yes (Hospitalization)
  Sender: FDA-Public Use
  Company Number: US-ASTRAZENECA-2010SE16902

PATIENT
  Age: 84 Year
  Sex: Female
  Weight: 72.6 kg

DRUGS (6)
  1. CRESTOR [Suspect]
     Indication: BLOOD CHOLESTEROL INCREASED
     Route: 048
     Dates: start: 20070101
  2. CRESTOR [Suspect]
     Route: 048
     Dates: start: 20070101
  3. CRESTOR [Suspect]
     Route: 048
     Dates: start: 20100101
  4. TRIAMTERENE AND HYDROCHLOROTHIAZIDE [Concomitant]
     Indication: BLOOD PRESSURE
     Dosage: 37.5/25 QD
  5. SYNTHROID [Concomitant]
     Dosage: QD
  6. SULINDAC [Concomitant]

REACTIONS (2)
  - ABDOMINAL ADHESIONS [None]
  - PAIN IN EXTREMITY [None]
